FAERS Safety Report 5995812-7 (Version None)
Quarter: 2008Q4

REPORT INFORMATION
  Report Type: 
  Country: None (occurrence: None)
  Receive Date: 20081212
  Receipt Date: 20081201
  Transmission Date: 20090506
  Serious: Yes (Hospitalization)
  Sender: FDA-Public Use
  Company Number: GB-PFIZER INC-2008150849

PATIENT

DRUGS (1)
  1. PHENYTOIN SODIUM AND PHENYTOIN [Suspect]
     Dosage: 100 MG, 3X/DAY

REACTIONS (1)
  - STATUS EPILEPTICUS [None]
